FAERS Safety Report 8323111-7 (Version None)
Quarter: 2012Q2

REPORT INFORMATION
  Report Type: 
  Country: None (occurrence: None)
  Receive Date: 20120430
  Receipt Date: 20120426
  Transmission Date: 20120825
  Serious: Yes (Hospitalization)
  Sender: FDA-Public Use
  Company Number: ES-ROCHE-1063360

PATIENT
  Age: 69 Year
  Sex: Female

DRUGS (2)
  1. EVEROLIMUS [Interacting]
     Indication: LUNG TRANSPLANT
     Route: 048
     Dates: start: 20070701
  2. MYCOPHENOLATE MOFETIL (CELLCEPT) [Suspect]
     Indication: LUNG TRANSPLANT
     Route: 048
     Dates: start: 20070701

REACTIONS (3)
  - LYMPHOEDEMA [None]
  - HYPOKALAEMIA [None]
  - RENAL FAILURE ACUTE [None]
